FAERS Safety Report 22280144 (Version 2)
Quarter: 2023Q2

REPORT INFORMATION
  Report Type: Report from Study
  Country: JP (occurrence: None)
  Receive Date: 20230503
  Receipt Date: 20230613
  Transmission Date: 20230721
  Serious: Yes (Death)
  Sender: FDA-Public Use
  Company Number: 2023A102135

PATIENT
  Age: 77 Year
  Sex: Male

DRUGS (5)
  1. ONDEXXYA [Suspect]
     Active Substance: ANDEXANET ALFA
     Indication: Upper gastrointestinal haemorrhage
     Dosage: 400 MG + 480 MG
     Route: 042
     Dates: start: 20230205, end: 20230205
  2. ELIQUIS [Concomitant]
     Active Substance: APIXABAN
     Indication: Haemorrhage
     Dates: start: 20230205
  3. PICILLIBACTA [Concomitant]
     Active Substance: AMPICILLIN SODIUM\SULBACTAM SODIUM
     Indication: Pneumonia
     Route: 065
     Dates: start: 20230130, end: 20230217
  4. SOYBEAN OIL [Concomitant]
     Active Substance: SOYBEAN OIL
     Indication: Nutritional condition abnormal
     Route: 065
     Dates: start: 20230202, end: 20230216
  5. OMEPRAZOLE [Concomitant]
     Active Substance: OMEPRAZOLE
     Indication: Gastrointestinal haemorrhage
     Dates: start: 20230205, end: 20230210

REACTIONS (1)
  - Pneumonia [Fatal]

NARRATIVE: CASE EVENT DATE: 20230104
